FAERS Safety Report 16969404 (Version 4)
Quarter: 2020Q1

REPORT INFORMATION
  Report Type: Report from Study
  Country: US (occurrence: US)
  Receive Date: 20191029
  Receipt Date: 20200123
  Transmission Date: 20200409
  Serious: Yes (Hospitalization, Other)
  Sender: FDA-Public Use
  Company Number: US-BIOGEN-2019BI00800159

PATIENT
  Age: 64 Year
  Sex: Female
  Weight: 66 kg

DRUGS (9)
  1. PROLIA [Concomitant]
     Active Substance: DENOSUMAB
     Dosage: INJECT UNDER THE SKIN
     Route: 065
  2. MAGNESIUM ORAL [Concomitant]
     Indication: PRODUCT USED FOR UNKNOWN INDICATION
     Route: 048
  3. ADVIL, MOTRIN [Concomitant]
     Indication: PRODUCT USED FOR UNKNOWN INDICATION
     Dosage: AS NEEDED
     Route: 048
  4. BONE CARE [Concomitant]
     Active Substance: ATRACTYLODES LANCEA ROOT
     Indication: PRODUCT USED FOR UNKNOWN INDICATION
     Route: 048
  5. TYSABRI [Suspect]
     Active Substance: NATALIZUMAB
     Indication: MULTIPLE SCLEROSIS
     Dosage: INFUSED OVER 1 OUR
     Route: 065
     Dates: start: 20100217, end: 20190918
  6. CHOLECALCIFEROL, VITAMIN D3 [Concomitant]
     Indication: PRODUCT USED FOR UNKNOWN INDICATION
     Route: 048
  7. ECOTRIN [Concomitant]
     Active Substance: ASPIRIN
     Indication: PRODUCT USED FOR UNKNOWN INDICATION
     Route: 048
  8. LIORESAL [Concomitant]
     Active Substance: BACLOFEN
     Indication: PRODUCT USED FOR UNKNOWN INDICATION
     Route: 048
  9. STOOL SOFTENER (DOCUSATE) [Concomitant]
     Active Substance: DOCUSATE
     Route: 048

REACTIONS (2)
  - Viral pericarditis [Not Recovered/Not Resolved]
  - Type V hyperlipidaemia [Unknown]

NARRATIVE: CASE EVENT DATE: 20191003
